FAERS Safety Report 7158820-9 (Version None)
Quarter: 2010Q4

REPORT INFORMATION
  Report Type: 
  Country: None (occurrence: None)
  Receive Date: 20101214
  Receipt Date: 20100707
  Transmission Date: 20110411
  Serious: No
  Sender: FDA-Public Use
  Company Number: US-ASTRAZENECA-2010SE31573

PATIENT
  Age: 56 Year
  Sex: Female

DRUGS (8)
  1. CRESTOR [Suspect]
     Indication: HYPERCHOLESTEROLAEMIA
     Route: 048
     Dates: start: 20100519
  2. AZOR [Concomitant]
  3. MOBIC [Concomitant]
  4. ZANAFLEX [Concomitant]
  5. ZANTAC [Concomitant]
  6. GLUCOPHAGE [Concomitant]
  7. NOVOLOG [Concomitant]
  8. NOREL [Concomitant]

REACTIONS (1)
  - BLISTER [None]
